FAERS Safety Report 4413544-3 (Version None)
Quarter: 2004Q3

REPORT INFORMATION
  Report Type: 
  Country: None (occurrence: None)
  Receive Date: 20040729
  Receipt Date: 20040726
  Transmission Date: 20050211
  Serious: Yes (Hospitalization, Disabling)
  Sender: FDA-Public Use
  Company Number: FRP04000626

PATIENT
  Age: 57 Year
  Sex: Male
  Weight: 86 kg

DRUGS (6)
  1. ACTONEL [Suspect]
     Indication: OSTEOPOROSIS
     Dosage: 5 MG, DAILY, ORAL
     Route: 048
  2. ALLOPURINOL [Suspect]
     Dosage: 100 MG , DAILY, ORAL
     Route: 048
  3. PROGRAF [Suspect]
     Indication: HEART TRANSPLANT
     Dosage: 6 MG, DAILY, ORAL
     Route: 048
  4. ATORVASTATIN CALCIUM [Suspect]
     Indication: HYPERLIPIDAEMIA
     Dosage: 20 MG, DAILY, ORAL
     Route: 048
  5. KENZEN ICANDESARTAN CILEXETIL) [Suspect]
     Indication: ESSENTIAL HYPERTENSION
     Dosage: 16 MG, DAILY, ORAL
     Route: 048
  6. CELLCEPT [Suspect]
     Indication: HEART TRANSPLANT
     Dosage: 2000 MG, DAILY, ORAL
     Route: 048

REACTIONS (1)
  - TENDON RUPTURE [None]
